FAERS Safety Report 10230055 (Version 1)
Quarter: 2014Q2

REPORT INFORMATION
  Report Type: Spontaneous
  Country: US (occurrence: US)
  Receive Date: 20140611
  Receipt Date: 20140611
  Transmission Date: 20141212
  Serious: Yes (Other)
  Sender: FDA-Public Use
  Company Number: US-MALLINCKRODT-T201402154

PATIENT
  Sex: Female

DRUGS (2)
  1. XARTEMIS XR [Suspect]
     Indication: PAIN
     Dosage: 7.5/325 MG, 2 TABS BID
     Route: 048
     Dates: start: 201405, end: 201405
  2. OXYCODONE / ACETAMINOPHEN [Concomitant]
     Dosage: UNK
     Dates: end: 201405

REACTIONS (3)
  - Restlessness [Unknown]
  - Agitation [Unknown]
  - Nightmare [Unknown]
